FAERS Safety Report 7706341-4 (Version None)
Quarter: 2011Q3

REPORT INFORMATION
  Report Type: 
  Country: None (occurrence: None)
  Receive Date: 20110824
  Receipt Date: 20110812
  Transmission Date: 20111222
  Serious: Yes (Other)
  Sender: FDA-Public Use
  Company Number: JP-ROCHE-798233

PATIENT
  Sex: Male

DRUGS (5)
  1. AVASTIN [Suspect]
     Indication: COLON CANCER METASTATIC
     Route: 041
     Dates: start: 20090203, end: 20090414
  2. OXALIPLATIN [Concomitant]
     Route: 041
  3. LEUCOVORIN CALCIUM [Concomitant]
     Route: 041
  4. FLUOROURACIL [Concomitant]
     Route: 040
  5. FLUOROURACIL [Concomitant]
     Route: 041

REACTIONS (1)
  - INTESTINAL OBSTRUCTION [None]
